FAERS Safety Report 7228544-8 (Version None)
Quarter: 2011Q1

REPORT INFORMATION
  Report Type: 
  Country: None (occurrence: None)
  Receive Date: 20110117
  Receipt Date: 20110107
  Transmission Date: 20110831
  Serious: Yes (Death)
  Sender: FDA-Public Use
  Company Number: PL-BIOGENIDEC-2011BI001181

PATIENT
  Age: 53 Year
  Sex: Male

DRUGS (3)
  1. INSULIN HUMULIN [Concomitant]
     Indication: DIABETES MELLITUS
     Dates: start: 19910101
  2. TYSABRI [Suspect]
     Indication: RELAPSING-REMITTING MULTIPLE SCLEROSIS
     Route: 042
     Dates: start: 20100526
  3. TICLO [Concomitant]
     Indication: MYOCARDIAL ISCHAEMIA
     Route: 048
     Dates: start: 19910101

REACTIONS (1)
  - SUDDEN DEATH [None]
